FAERS Safety Report 24106870 (Version 1)
Quarter: 2024Q3

REPORT INFORMATION
  Report Type: Spontaneous
  Country: GB (occurrence: GB)
  Receive Date: 20240717
  Receipt Date: 20240717
  Transmission Date: 20241016
  Serious: Yes (Disabling, Other)
  Sender: UCB
  Company Number: None

PATIENT
  Sex: Female
  Weight: 50 kg

DRUGS (1)
  1. KEPPRA [Suspect]
     Active Substance: LEVETIRACETAM
     Indication: Epilepsy
     Dosage: 1 GRAM, 2X/DAY (BID)

REACTIONS (3)
  - Dry eye [Not Recovered/Not Resolved]
  - Amblyopia [Not Recovered/Not Resolved]
  - Colour blindness [Not Recovered/Not Resolved]
